FAERS Safety Report 6788752-7 (Version None)
Quarter: 2010Q2

REPORT INFORMATION
  Report Type: 
  Country: None (occurrence: None)
  Receive Date: 20100623
  Receipt Date: 20080430
  Transmission Date: 20101027
  Serious: No
  Sender: FDA-Public Use
  Company Number: US-PFIZER INC-2008040152

PATIENT
  Age: 86 Year
  Sex: Male

DRUGS (2)
  1. NIFEDIPINE [Suspect]
     Indication: PERIPHERAL COLDNESS
     Route: 048
     Dates: start: 20080401
  2. NIFEDIPINE [Suspect]
     Indication: PERIPHERAL VASCULAR DISORDER

REACTIONS (3)
  - CONSTIPATION [None]
  - DRUG EFFECT DECREASED [None]
  - PERIPHERAL COLDNESS [None]
